FAERS Safety Report 21479796 (Version 2)
Quarter: 2022Q4

REPORT INFORMATION
  Report Type: Report from Study
  Country: BR (occurrence: BR)
  Receive Date: 20221019
  Receipt Date: 20221026
  Transmission Date: 20230113
  Serious: Yes (Other)
  Sender: FDA-Public Use
  Company Number: BR-BoehringerIngelheim-2021-BI-142277

PATIENT
  Age: 82 Year
  Sex: Female
  Weight: 31 kg

DRUGS (12)
  1. OFEV [Suspect]
     Active Substance: NINTEDANIB
     Indication: Idiopathic pulmonary fibrosis
     Dosage: 1 TABLET OF 150 MG, ORALLY, EACH 12 HOURS
     Route: 048
     Dates: start: 202106
  2. OFEV [Suspect]
     Active Substance: NINTEDANIB
     Dosage: IN THE MORNING
     Dates: start: 202201
  3. PURAN [Concomitant]
     Active Substance: LEVOTHYROXINE SODIUM
     Indication: Hypothyroidism
     Dosage: 1 TABLET, ORALLY, IN THE MORNING
     Route: 048
  4. PURAN [Concomitant]
     Active Substance: LEVOTHYROXINE SODIUM
     Dosage: 1 TABLET 1X A DAY IN THE MORNING ON AN EMPTY STOMACH
  5. LOSARTAN POTASSIUM [Concomitant]
     Active Substance: LOSARTAN POTASSIUM
     Indication: Hypertension
     Dosage: 1 TABLET OF 50 MG, ORALLY, IN THE MORNING
     Route: 048
  6. MIND [Concomitant]
     Indication: Product used for unknown indication
     Dosage: 1 TABLET, ORALLY, IN THE MORNING
     Route: 048
  7. DEXILAN [Concomitant]
     Indication: Gastrooesophageal reflux disease
     Dosage: 1 TABLET, ORALLY, IN THE MORNING
     Route: 048
  8. DOMPERIDONE [Concomitant]
     Active Substance: DOMPERIDONE
     Indication: Gastrooesophageal reflux disease
     Dosage: 1 TABLET, ORALLY, IN THE MORNING
     Route: 048
  9. ROVASTATINA [Concomitant]
     Indication: Blood cholesterol
     Dosage: 1 TABLET, ORALLY, AT NIGHT
     Route: 048
  10. ACIDO F?LICO [Concomitant]
     Indication: Product used for unknown indication
     Dosage: 1 TABLET, ORALLY, AT NIGHT
     Route: 048
  11. CYANOCOBALAMIN\PYRIDOXINE HYDROCHLORIDE\THIAMINE [Concomitant]
     Active Substance: CYANOCOBALAMIN\PYRIDOXINE HYDROCHLORIDE\THIAMINE
     Indication: Pain
     Dosage: 1 TABLET, ORALLY, AT NIGHT
     Route: 048
  12. DEXILANT [Concomitant]
     Active Substance: DEXLANSOPRAZOLE
     Indication: Product used for unknown indication
     Dosage: 1 TABLET ONCE DAILY

REACTIONS (12)
  - Idiopathic pulmonary fibrosis [Unknown]
  - Diarrhoea [Recovered/Resolved]
  - Weight decreased [Not Recovered/Not Resolved]
  - Decreased appetite [Not Recovered/Not Resolved]
  - Nausea [Not Recovered/Not Resolved]
  - Vomiting [Not Recovered/Not Resolved]
  - Diarrhoea [Recovered/Resolved]
  - Retching [Not Recovered/Not Resolved]
  - Diarrhoea [Recovered/Resolved]
  - Diarrhoea [Recovered/Resolved]
  - Weight decreased [Not Recovered/Not Resolved]
  - Secretion discharge [Not Recovered/Not Resolved]

NARRATIVE: CASE EVENT DATE: 20210801
